FAERS Safety Report 25792769 (Version 3)
Quarter: 2025Q4

REPORT INFORMATION
  Report Type: Report from Study
  Country: BR (occurrence: BR)
  Receive Date: 20250911
  Receipt Date: 20251017
  Transmission Date: 20260118
  Serious: Yes (Other)
  Sender: ALEXION PHARMACEUTICALS
  Company Number: BR-ASTRAZENECA-202509SAM003926BR

PATIENT
  Age: 31 Year

DRUGS (1)
  1. ANIFROLUMAB [Suspect]
     Active Substance: ANIFROLUMAB
     Indication: Systemic lupus erythematosus
     Route: 065

REACTIONS (2)
  - Peripheral arterial occlusive disease [Unknown]
  - Intermittent claudication [Unknown]

NARRATIVE: CASE EVENT DATE: 20240801
